FAERS Safety Report 25945529 (Version 3)
Quarter: 2025Q4

REPORT INFORMATION
  Report Type: Report from Study
  Country: CA (occurrence: CA)
  Receive Date: 20251021
  Receipt Date: 20251231
  Transmission Date: 20260117
  Serious: Yes (Hospitalization, Other)
  Sender: PFIZER
  Company Number: CA-PFIZER INC-202400282317

PATIENT
  Age: 74 Year
  Sex: Female
  Weight: 66 kg

DRUGS (7)
  1. RUXIENCE [Suspect]
     Active Substance: RITUXIMAB-PVVR
     Indication: Rheumatoid arthritis
     Dosage: 1000 MG, DAY 1 AND DAY 15, SUBSEQUENT TREATMENT DAY 1 AND DAY 15
     Route: 042
     Dates: start: 20241019, end: 20241019
  2. RUXIENCE [Suspect]
     Active Substance: RITUXIMAB-PVVR
     Dosage: 1000 MG, DAY 1 AND DAY 15, SUBSEQUENT TREATMENT DAY 1 AND DAY 15
     Route: 042
     Dates: start: 20241101
  3. RUXIENCE [Suspect]
     Active Substance: RITUXIMAB-PVVR
     Dosage: 1000 MG, SINGLE DOSE
     Route: 042
     Dates: start: 20250514, end: 20250514
  4. RUXIENCE [Suspect]
     Active Substance: RITUXIMAB-PVVR
     Dosage: 1000 MG, SINGLE DOSE
     Route: 042
     Dates: start: 20250711, end: 20250711
  5. DIPHENHYDRAMINE [Concomitant]
     Active Substance: DIPHENHYDRAMINE
     Indication: Premedication
     Dosage: 50 MG
     Route: 042
  6. METHYLPREDNISOLONE [Concomitant]
     Active Substance: METHYLPREDNISOLONE
     Indication: Premedication
     Dosage: 100 MG
     Route: 042
  7. HYDROXYCHLOROQUINE DIPHOSPHATE [Concomitant]
     Active Substance: HYDROXYCHLOROQUINE DIPHOSPHATE
     Dosage: 1 DF

REACTIONS (12)
  - Inappropriate antidiuretic hormone secretion [Recovering/Resolving]
  - Ileus [Recovering/Resolving]
  - Infection [Unknown]
  - Herpes zoster [Recovering/Resolving]
  - Foot deformity [Recovering/Resolving]
  - Bunion operation [Unknown]
  - Post herpetic neuralgia [Unknown]
  - Blood creatine phosphokinase decreased [Unknown]
  - C-reactive protein increased [Unknown]
  - Insomnia [Unknown]
  - Condition aggravated [Unknown]
  - Off label use [Unknown]

NARRATIVE: CASE EVENT DATE: 20250101
